FAERS Safety Report 18778181 (Version 3)
Quarter: 2021Q1

REPORT INFORMATION
  Report Type: Report from Study
  Country: BR (occurrence: BR)
  Receive Date: 20210123
  Receipt Date: 20210216
  Transmission Date: 20210419
  Serious: Yes (Death, Life-Threatening, Hospitalization, Other)
  Sender: FDA-Public Use
  Company Number: NVSC2021BR011861

PATIENT
  Age: 54 Year
  Sex: Male

DRUGS (5)
  1. ZOLADEX [Concomitant]
     Active Substance: GOSERELIN ACETATE
     Indication: HORMONE SUPPRESSION THERAPY
     Dosage: 28 DAYS INTERVAL
     Route: 033
     Dates: start: 202010
  2. PROPOLIS [Concomitant]
     Active Substance: PROPOLIS WAX
     Indication: PRODUCT USED FOR UNKNOWN INDICATION
     Dosage: UNK UNK, QD (IN THE MORNING)
     Route: 065
  3. NORADRENALINE [Concomitant]
     Active Substance: NOREPINEPHRINE
     Indication: PRODUCT USED FOR UNKNOWN INDICATION
     Route: 065
  4. KISQALI [Suspect]
     Active Substance: RIBOCICLIB
     Indication: BREAST CANCER
     Dosage: 3 DF (21 DAYS, 7 DAYS BREAK)
     Route: 048
     Dates: start: 20201215
  5. LETROZOLE. [Concomitant]
     Active Substance: LETROZOLE
     Indication: PRODUCT USED FOR UNKNOWN INDICATION
     Dosage: UNK
     Route: 065

REACTIONS (31)
  - Respiratory failure [Fatal]
  - Fatigue [Unknown]
  - Pleural effusion [Unknown]
  - Condition aggravated [Unknown]
  - Pneumothorax [Unknown]
  - Type 2 diabetes mellitus [Not Recovered/Not Resolved]
  - Cardio-respiratory arrest [Fatal]
  - Metastases to bone [Unknown]
  - Loss of consciousness [Unknown]
  - Metastases to liver [Unknown]
  - Malaise [Unknown]
  - Glomerular filtration rate decreased [Unknown]
  - Breast neoplasm [Fatal]
  - Dyspnoea [Fatal]
  - Paralysis [Recovering/Resolving]
  - Thyroid neoplasm [Unknown]
  - Renal impairment [Unknown]
  - Somnolence [Unknown]
  - Cough [Unknown]
  - Disorientation [Unknown]
  - Dysphagia [Unknown]
  - Lymphadenopathy [Unknown]
  - Blood creatinine increased [Unknown]
  - Oxygen saturation decreased [Fatal]
  - Glycosylated haemoglobin increased [Unknown]
  - Blood glucose increased [Not Recovered/Not Resolved]
  - Metastases to adrenals [Unknown]
  - Cardiovascular insufficiency [Unknown]
  - Bradycardia [Unknown]
  - Hypotension [Unknown]
  - Urinary tract infection [Unknown]

NARRATIVE: CASE EVENT DATE: 20201215
